FAERS Safety Report 8498299-8 (Version None)
Quarter: 2012Q3

REPORT INFORMATION
  Report Type: 
  Country: None (occurrence: None)
  Receive Date: 20120709
  Receipt Date: 20120621
  Transmission Date: 20120928
  Serious: No
  Sender: FDA-Public Use
  Company Number: US-AMGEN-USASP2012038733

PATIENT
  Age: 61 Year
  Sex: Female

DRUGS (5)
  1. ACTOS [Concomitant]
     Dosage: UNK
  2. METFORMIN HCL [Concomitant]
     Dosage: UNK
  3. ENBREL [Suspect]
     Indication: RHEUMATOID ARTHRITIS
     Dosage: 50 MG, QWK
     Dates: start: 20090101
  4. LANTUS [Concomitant]
     Dosage: UNK
  5. METOCLOPRAMIDE [Concomitant]
     Dosage: UNK

REACTIONS (3)
  - EAR INFECTION [None]
  - NASOPHARYNGITIS [None]
  - SINUSITIS [None]
